FAERS Safety Report 6972783-8 (Version None)
Quarter: 2010Q3

REPORT INFORMATION
  Report Type: 
  Country: None (occurrence: None)
  Receive Date: 20100909
  Receipt Date: 20100826
  Transmission Date: 20110219
  Serious: No
  Sender: FDA-Public Use
  Company Number: US-PFIZER INC-2010107976

PATIENT
  Sex: Female
  Weight: 58 kg

DRUGS (2)
  1. XALATAN [Suspect]
     Indication: GLAUCOMA
     Dosage: ONE DROP IN EACH EYE
     Route: 047
     Dates: start: 20100101
  2. GELUSIL ANTACID [Concomitant]
     Indication: GASTROOESOPHAGEAL REFLUX DISEASE
     Dosage: UNK

REACTIONS (1)
  - UPPER RESPIRATORY TRACT CONGESTION [None]
